FAERS Safety Report 5077959-5 (Version None)
Quarter: 2006Q3

REPORT INFORMATION
  Report Type: 
  Country: None (occurrence: None)
  Receive Date: 20060808
  Receipt Date: 20060731
  Transmission Date: 20061208
  Serious: Yes (Hospitalization)
  Sender: FDA-Public Use
  Company Number: GXKR2006ES04393

PATIENT
  Age: 81 Year
  Sex: Male

DRUGS (5)
  1. AZITHROMYCIN [Suspect]
     Indication: BRONCHITIS ACUTE
     Dosage: 250  MG/DAY
  2. ATORVASTATIN CALCIUM [Concomitant]
  3. OMEPRAZOLE [Concomitant]
  4. FLUOXETINE [Concomitant]
  5. LORMETAZEPAM (LORMETAZAPAM) [Concomitant]

REACTIONS (4)
  - CEREBRAL ATROPHY [None]
  - DELIRIUM [None]
  - HALLUCINATION, VISUAL [None]
  - MOOD ALTERED [None]
